FAERS Safety Report 12297052 (Version 1)
Quarter: 2016Q2

REPORT INFORMATION
  Report Type: Other
  Country: GB (occurrence: GB)
  Receive Date: 20160422
  Receipt Date: 20160422
  Transmission Date: 20160815
  Serious: Yes (Life-Threatening, Hospitalization, Disabling, Other)
  Sender: FDA-Public Use
  Company Number: GB-MYLANLABS-2016M1016216

PATIENT

DRUGS (20)
  1. CETRABEN                           /01007601/ [Concomitant]
     Indication: PRODUCT USED FOR UNKNOWN INDICATION
     Dosage: UNK
     Route: 065
  2. MAGNESIUM ASPARTATE [Concomitant]
     Active Substance: MAGNESIUM ASPARTATE
     Indication: PRODUCT USED FOR UNKNOWN INDICATION
     Dosage: UNK
     Route: 065
  3. PARACETAMOL [Concomitant]
     Active Substance: ACETAMINOPHEN
     Indication: ANALGESIC THERAPY
     Dosage: UNK
     Route: 065
     Dates: start: 20160320
  4. RAMIPRIL. [Concomitant]
     Active Substance: RAMIPRIL
     Indication: ACUTE LEFT VENTRICULAR FAILURE
     Dosage: UNK
     Route: 065
     Dates: start: 20160322
  5. ASPIRIN                            /00002701/ [Suspect]
     Active Substance: ASPIRIN
     Dosage: 75 MG, QD
     Route: 048
     Dates: start: 20160320, end: 20160322
  6. AMOXICILLIN. [Concomitant]
     Active Substance: AMOXICILLIN
     Indication: PRODUCT USED FOR UNKNOWN INDICATION
     Dosage: UNK
     Route: 065
     Dates: start: 20160302, end: 20160306
  7. ASPIRIN                            /00002701/ [Suspect]
     Active Substance: ASPIRIN
     Indication: ACUTE MYOCARDIAL INFARCTION
     Dosage: 300 MG, ONCE
     Route: 048
     Dates: start: 20160319, end: 20160319
  8. ELIQUIS [Suspect]
     Active Substance: APIXABAN
     Indication: CEREBROVASCULAR ACCIDENT PROPHYLAXIS
     Dosage: 10 MG, QD
     Route: 048
     Dates: start: 20160322, end: 20160323
  9. TICAGRELOR [Suspect]
     Active Substance: TICAGRELOR
     Indication: ACUTE MYOCARDIAL INFARCTION
     Dosage: 180 MG, ONCE
     Route: 048
     Dates: start: 20160319, end: 20160319
  10. BISOPROLOL [Concomitant]
     Active Substance: BISOPROLOL
     Indication: PRODUCT USED FOR UNKNOWN INDICATION
     Dosage: UNK
     Route: 065
     Dates: start: 20160319
  11. FUROSEMIDE. [Concomitant]
     Active Substance: FUROSEMIDE
     Indication: PRODUCT USED FOR UNKNOWN INDICATION
     Dosage: UNK
     Route: 065
     Dates: start: 20160321
  12. SALBUTAMOL [Concomitant]
     Active Substance: ALBUTEROL
     Indication: PRODUCT USED FOR UNKNOWN INDICATION
     Dosage: UNK
     Route: 065
  13. TICAGRELOR [Suspect]
     Active Substance: TICAGRELOR
     Dosage: 90 MG, BID
     Route: 048
     Dates: start: 20160320, end: 20160322
  14. CITALOPRAM [Concomitant]
     Active Substance: CITALOPRAM HYDROBROMIDE
     Indication: PRODUCT USED FOR UNKNOWN INDICATION
     Dosage: UNK
     Route: 065
  15. DIAMORPHINE [Concomitant]
     Active Substance: DIACETYLMORPHINE
     Indication: CHEST PAIN
     Dosage: UNK
     Dates: start: 20160320, end: 20160323
  16. GLYCERYL TRINITRATE [Concomitant]
     Active Substance: NITROGLYCERIN
     Indication: PRODUCT USED FOR UNKNOWN INDICATION
     Dosage: UNK
     Dates: start: 20160319, end: 20160323
  17. FONDAPARINUX [Suspect]
     Active Substance: FONDAPARINUX
     Indication: OFF LABEL USE
  18. METOCLOPRAMIDE. [Concomitant]
     Active Substance: METOCLOPRAMIDE
     Indication: PRODUCT USED FOR UNKNOWN INDICATION
     Dosage: UNK
     Route: 065
     Dates: start: 20160320
  19. FONDAPARINUX [Suspect]
     Active Substance: FONDAPARINUX
     Indication: ACUTE CORONARY SYNDROME
     Dosage: 2.5 MG, QD
     Route: 058
     Dates: start: 20160320, end: 20160323
  20. ATORVASTATIN [Concomitant]
     Active Substance: ATORVASTATIN
     Indication: ACUTE MYOCARDIAL INFARCTION
     Dosage: UNK
     Route: 065
     Dates: start: 20160319

REACTIONS (4)
  - Cerebral haemorrhage [Unknown]
  - Hemiplegia [Unknown]
  - Atrial fibrillation [Unknown]
  - Aphasia [Unknown]

NARRATIVE: CASE EVENT DATE: 20160322
